FAERS Safety Report 6929721-3 (Version None)
Quarter: 2010Q3

REPORT INFORMATION
  Report Type: 
  Country: None (occurrence: None)
  Receive Date: 20100818
  Receipt Date: 20100812
  Transmission Date: 20110219
  Serious: Yes (Death)
  Sender: FDA-Public Use
  Company Number: MY-BRACCO-000004

PATIENT
  Sex: Female

DRUGS (10)
  1. IOPAMIRO [Suspect]
     Indication: ASCITES
     Route: 042
     Dates: start: 20100803, end: 20100803
  2. IOPAMIRO [Suspect]
     Indication: OVARIAN CANCER
     Route: 042
     Dates: start: 20100803, end: 20100803
  3. IOPAMIRO [Suspect]
     Indication: ABDOMINAL DISTENSION
     Route: 042
     Dates: start: 20100803, end: 20100803
  4. IOPAMIRO [Suspect]
     Indication: ABDOMINAL PAIN
     Route: 042
     Dates: start: 20100803, end: 20100803
  5. IOPAMIRO [Suspect]
     Indication: PERITONEAL CYST
     Route: 042
     Dates: start: 20100803, end: 20100803
  6. IOPAMIRO [Suspect]
     Indication: COMPUTERISED TOMOGRAM
     Route: 042
     Dates: start: 20100803, end: 20100803
  7. TRAMAL [Concomitant]
     Route: 042
  8. PCM [Concomitant]
     Route: 065
  9. MESALAZINE [Concomitant]
     Route: 065
  10. MAXOLON [Concomitant]
     Route: 042

REACTIONS (4)
  - DYSPNOEA [None]
  - HYPERTENSION [None]
  - RHONCHI [None]
  - TACHYCARDIA [None]
